FAERS Safety Report 19524854 (Version 1)
Quarter: 2021Q3

REPORT INFORMATION
  Report Type: Spontaneous
  Country: US (occurrence: US)
  Receive Date: 20210712
  Receipt Date: 20210712
  Transmission Date: 20211014
  Serious: Yes (Other)
  Sender: FDA-Public Use
  Company Number: None

PATIENT
  Sex: Male

DRUGS (2)
  1. OLOPATADINE. [Concomitant]
     Active Substance: OLOPATADINE
  2. DUREZOL [Suspect]
     Active Substance: DIFLUPREDNATE

REACTIONS (2)
  - Macular degeneration [None]
  - Visual impairment [None]
